FAERS Safety Report 11294261 (Version 1)
Quarter: 2015Q3

REPORT INFORMATION
  Report Type: Spontaneous
  Country: US (occurrence: US)
  Receive Date: 20150722
  Receipt Date: 20150722
  Transmission Date: 20151125
  Serious: No
  Sender: FDA-Public Use
  Company Number: US-ELI_LILLY_AND_COMPANY-US200803003791

PATIENT
  Age: 83 Year
  Sex: Female

DRUGS (3)
  1. EVISTA [Suspect]
     Active Substance: RALOXIFENE HYDROCHLORIDE
     Indication: OSTEOPOROSIS
     Dosage: 60 MG, DAILY (1/D)
     Dates: start: 1998
  2. AZOR [Concomitant]
     Active Substance: AMLODIPINE BESYLATE\OLMESARTAN MEDOXOMIL
     Indication: HYPERTENSION
     Dosage: UNK, DAILY (1/D)
  3. DIOVAN [Concomitant]
     Active Substance: VALSARTAN
     Dosage: UNK, DAILY (1/D)

REACTIONS (2)
  - Fall [Recovered/Resolved]
  - Muscle spasms [Recovered/Resolved]
